FAERS Safety Report 6759521-9 (Version None)
Quarter: 2010Q2

REPORT INFORMATION
  Report Type: 
  Country: None (occurrence: None)
  Receive Date: 20100603
  Receipt Date: 20100519
  Transmission Date: 20101027
  Serious: Yes (Death, Life-Threatening)
  Sender: FDA-Public Use
  Company Number: 2010-00547

PATIENT
  Age: 87 Year
  Sex: Female

DRUGS (13)
  1. SIMVASTATIN [Suspect]
     Indication: HYPERCHOLESTEROLAEMIA
     Dosage: 40 MG (40 MG, 1 IN 1 D), ORAL
     Route: 048
     Dates: start: 20100114, end: 20100319
  2. NORFLOXACIN [Suspect]
     Indication: DRUG USE FOR UNKNOWN INDICATION
     Dosage: 2 DOSES FORMS
  3. BISOPROLOL [Concomitant]
  4. ISOSORBIDE [Concomitant]
  5. ASPIRIN [Concomitant]
  6. CITALOPRAM [Concomitant]
  7. ACETAMINOPHEN AND CODEINE PHOSPHATE [Concomitant]
  8. FRUSEMIDE [Concomitant]
  9. GLYCERYL TRINITRATE [Concomitant]
  10. MADOPAR [Concomitant]
  11. PERINDOPRIL [Concomitant]
  12. SIMVASTATIN [Concomitant]
  13. NORFLOXACIN [Concomitant]

REACTIONS (6)
  - CARDIAC FAILURE [None]
  - GENERAL PHYSICAL HEALTH DETERIORATION [None]
  - MOBILITY DECREASED [None]
  - PNEUMONIA [None]
  - RENAL FAILURE [None]
  - RHABDOMYOLYSIS [None]
